FAERS Safety Report 8576127-X (Version None)
Quarter: 2012Q3

REPORT INFORMATION
  Report Type: 
  Country: None (occurrence: None)
  Receive Date: 20120725
  Receipt Date: 20120711
  Transmission Date: 20120928
  Serious: Yes (Hospitalization)
  Sender: FDA-Public Use
  Company Number: 1713747-2012-00001

PATIENT
  Sex: Female

DRUGS (15)
  1. VENTOLIN [Concomitant]
  2. ATENOLOL [Concomitant]
  3. RENVELA [Concomitant]
  4. LISINOPRIL [Concomitant]
  5. LANTUS [Concomitant]
  6. MEDROL DOSEPAK X1 [Concomitant]
  7. LEVAQUIN [Concomitant]
  8. RENA-VITE [Concomitant]
  9. LORTAB [Concomitant]
  10. TYLENOL [Concomitant]
  11. NIFEDIPINE [Concomitant]
  12. DELFLEX STAY SAFE 2.5% DEX. LM/LC 2L, 5PK [Suspect]
     Indication: PERITONEAL DIALYSIS
     Dosage: IP
     Dates: start: 20120625, end: 20120629
  13. LOSARTAN POTASSIUM [Concomitant]
  14. OXYGEN [Concomitant]
  15. PEPCID [Concomitant]

REACTIONS (9)
  - HYPERSENSITIVITY [None]
  - PERITONITIS [None]
  - SWELLING FACE [None]
  - RASH [None]
  - DIZZINESS [None]
  - ERYTHEMA OF EYELID [None]
  - LEUKOCYTOSIS [None]
  - HYPOTENSION [None]
  - ERYTHEMA [None]
